FAERS Safety Report 18238755 (Version 1)
Quarter: 2020Q3

REPORT INFORMATION
  Report Type: Spontaneous
  Country: US (occurrence: US)
  Receive Date: 20200907
  Receipt Date: 20200907
  Transmission Date: 20201103
  Serious: Yes (Other)
  Sender: FDA-Public Use
  Company Number: US-UCBSA-2020035491

PATIENT
  Sex: Female

DRUGS (3)
  1. VIMPAT [Suspect]
     Active Substance: LACOSAMIDE
     Indication: SEIZURE
     Dosage: 200 MILLIGRAM, 2X/DAY (BID)
     Dates: start: 2015
  2. VIMPAT [Suspect]
     Active Substance: LACOSAMIDE
     Dosage: UPTO 800MG A DAY
  3. KLONOPIN [Concomitant]
     Active Substance: CLONAZEPAM
     Indication: SEIZURE

REACTIONS (4)
  - Seizure [Not Recovered/Not Resolved]
  - Vision blurred [Not Recovered/Not Resolved]
  - Product use issue [Unknown]
  - Cataract [Not Recovered/Not Resolved]

NARRATIVE: CASE EVENT DATE: 2018
